FAERS Safety Report 18407812 (Version 2)
Quarter: 2021Q3

REPORT INFORMATION
  Report Type: Spontaneous
  Country: US (occurrence: US)
  Receive Date: 20201021
  Receipt Date: 20210713
  Transmission Date: 20211014
  Serious: Yes (Death, Other)
  Sender: FDA-Public Use
  Company Number: US-SA-2020SA290175

PATIENT
  Age: 50 Year

DRUGS (2)
  1. ZANTAC [Suspect]
     Active Substance: RANITIDINE HYDROCHLORIDE
     Indication: HYPERCHLORHYDRIA
  2. ZANTAC [Suspect]
     Active Substance: RANITIDINE HYDROCHLORIDE
     Indication: DYSPEPSIA
     Dosage: 150 MG, FREQUENCY: OTHER
     Dates: start: 199501, end: 201811

REACTIONS (9)
  - Lung neoplasm malignant [Unknown]
  - Colorectal cancer [Unknown]
  - Hepatic cancer stage IV [Unknown]
  - Renal cancer [Unknown]
  - Pancreatic carcinoma stage IV [Unknown]
  - Gastrointestinal carcinoma [Fatal]
  - Adrenal gland cancer [Unknown]
  - Gastric cancer stage IV [Unknown]
  - Small intestine carcinoma stage IV [Unknown]

NARRATIVE: CASE EVENT DATE: 20130201
